FAERS Safety Report 11701284 (Version 1)
Quarter: 2015Q4

REPORT INFORMATION
  Report Type: Spontaneous
  Country: US (occurrence: FI)
  Receive Date: 20151105
  Receipt Date: 20151105
  Transmission Date: 20160304
  Serious: Yes (Hospitalization)
  Sender: FDA-Public Use
  Company Number: US-AKORN PHARMACEUTICALS-2015AKN00643

PATIENT
  Age: 65 Year
  Sex: Male

DRUGS (8)
  1. ZYLORIC [Concomitant]
     Active Substance: ALLOPURINOL
     Dosage: UNK TABLETS, UNK
  2. EVIPROSTAT N [Concomitant]
     Active Substance: HERBALS
     Dosage: UNK TABLETS, UNK
     Dates: start: 20141215
  3. ZIOPTAN [Suspect]
     Active Substance: TAFLUPROST
     Indication: GLAUCOMA
     Dosage: 2 GTT,DAY (1GTT, QD, OU)
     Route: 047
     Dates: start: 20130722
  4. LOSARTAN POTASSIUM. [Concomitant]
     Active Substance: LOSARTAN POTASSIUM
     Dosage: UNK TABLETS, UNK
  5. TAMSULOSIN HYDROCHLORIDE. [Concomitant]
     Active Substance: TAMSULOSIN HYDROCHLORIDE
     Dosage: UNK TABLETS, UNK
  6. BETANIS [Concomitant]
     Active Substance: MIRABEGRON
     Dosage: UNK TABLETS, UNK
  7. AMLODIPINE BESYLATE. [Concomitant]
     Active Substance: AMLODIPINE BESYLATE
     Dosage: UNK TABLETS, UNK
  8. CRESTOR [Concomitant]
     Active Substance: ROSUVASTATIN CALCIUM
     Dosage: UNK TABLETS, UNK

REACTIONS (2)
  - Benign prostatic hyperplasia [Unknown]
  - Calculus bladder [Unknown]
